FAERS Safety Report 9389996 (Version 2)
Quarter: 2014Q2

REPORT INFORMATION
  Report Type: Spontaneous
  Country: US (occurrence: US)
  Receive Date: 20130708
  Receipt Date: 20140602
  Transmission Date: 20141212
  Serious: No
  Sender: FDA-Public Use
  Company Number: US-AMGEN-USASP2013042399

PATIENT
  Age: 66 Year
  Sex: Female

DRUGS (2)
  1. ENBREL [Suspect]
     Indication: RHEUMATOID ARTHRITIS
     Dosage: 50 MG, QWK
     Route: 065
     Dates: start: 20130508, end: 20130722
  2. ENBREL [Suspect]
     Dosage: UNK
     Route: 065

REACTIONS (4)
  - Hypertension [Recovered/Resolved]
  - Heart rate decreased [Not Recovered/Not Resolved]
  - Ear pain [Not Recovered/Not Resolved]
  - Headache [Not Recovered/Not Resolved]
